FAERS Safety Report 6198287-0 (Version None)
Quarter: 2009Q2

REPORT INFORMATION
  Report Type: 
  Country: None (occurrence: None)
  Receive Date: 20090519
  Receipt Date: 20090504
  Transmission Date: 20091009
  Serious: Yes (Other)
  Sender: FDA-Public Use
  Company Number: DSU-2009-01011

PATIENT
  Age: 64 Year
  Sex: Female
  Weight: 70.3075 kg

DRUGS (3)
  1. AZOR [Suspect]
     Indication: HYPERTENSION
     Dosage: 5/20 MG (QD), PER ORAL
     Route: 048
     Dates: start: 20090101
  2. ZIAC (HYDROCHLOROTHIAZIDE, BISOPROLOL FUMARATE) (HYDROCHLOROTHIAZIDE, [Concomitant]
  3. GEMFIBROZIL (GEMFIBROZIL) (GEMFIBROZIL) [Concomitant]

REACTIONS (1)
  - DEAFNESS UNILATERAL [None]
